FAERS Safety Report 5383571-0 (Version None)
Quarter: 2007Q3

REPORT INFORMATION
  Report Type: 
  Country: None (occurrence: None)
  Receive Date: 20070706
  Receipt Date: 20070620
  Transmission Date: 20080115
  Serious: Yes (Other)
  Sender: FDA-Public Use
  Company Number: B0477087B

PATIENT
  Sex: 0

DRUGS (2)
  1. AMOXICILLIN TRIHYDRATE (GENERIC) (AMOXICILLIN) [Suspect]
     Indication: PNEUMONIA
     Dosage: TRANSPLACENTARY
     Route: 064
  2. ANESTHETIC (ANESTHETIC) [Suspect]
     Indication: CAESAREAN SECTION
     Dosage: TRANSPLACENTARY
     Route: 064

REACTIONS (5)
  - CAESAREAN SECTION [None]
  - DRUG EXPOSURE DURING PREGNANCY [None]
  - ENCEPHALOPATHY [None]
  - FOETAL HEART RATE DECREASED [None]
  - PSYCHOMOTOR SKILLS IMPAIRED [None]
